FAERS Safety Report 9191451 (Version 2)
Quarter: 2013Q2

REPORT INFORMATION
  Report Type: Spontaneous
  Country: US (occurrence: US)
  Receive Date: 20130326
  Receipt Date: 20130411
  Transmission Date: 20140414
  Serious: Yes (Other)
  Sender: FDA-Public Use
  Company Number: US-MPIJNJ-2013-02181

PATIENT
  Sex: 0

DRUGS (3)
  1. VELCADE [Suspect]
     Indication: WALDENSTROM^S MACROGLOBULINAEMIA
     Dosage: 1.4 MG, CYCLIC
     Route: 040
  2. DEXAMETHASONE [Suspect]
     Indication: WALDENSTROM^S MACROGLOBULINAEMIA
     Dosage: 40 MG, CYCLIC
     Route: 042
  3. RITUXIMAB [Suspect]
     Indication: WALDENSTROM^S MACROGLOBULINAEMIA
     Dosage: 375 MG/M2, CYCLIC

REACTIONS (8)
  - Anaemia of malignant disease [Unknown]
  - Chronic hepatitis [Unknown]
  - Cardiac failure congestive [Unknown]
  - Adverse drug reaction [Unknown]
  - Thrombocytopenia [Unknown]
  - Visual impairment [Unknown]
  - Neuropathy peripheral [Unknown]
  - Off label use [Unknown]
